FAERS Safety Report 13611211 (Version 1)
Quarter: 2017Q2

REPORT INFORMATION
  Report Type: Spontaneous
  Country: US (occurrence: US)
  Receive Date: 20170604
  Receipt Date: 20170604
  Transmission Date: 20170830
  Serious: Yes (Disabling)
  Sender: FDA-Public Use
  Company Number: None

PATIENT
  Age: 55 Year
  Sex: Male
  Weight: 82.8 kg

DRUGS (6)
  1. MOXIFLOXIN [Suspect]
     Active Substance: MOXIFLOXACIN HYDROCHLORIDE
     Indication: DIVERTICULITIS
     Dosage: ?          QUANTITY:10 TABLET(S);?
     Route: 048
     Dates: start: 20170110, end: 20170120
  2. CITALOPRAM [Concomitant]
     Active Substance: CITALOPRAM HYDROBROMIDE
  3. TRAZEDONE [Concomitant]
  4. VITAMIN D [Concomitant]
     Active Substance: CHOLECALCIFEROL
  5. METOPROLOL. [Concomitant]
     Active Substance: METOPROLOL
  6. LORATADINE. [Concomitant]
     Active Substance: LORATADINE

REACTIONS (1)
  - Tendon disorder [None]

NARRATIVE: CASE EVENT DATE: 20170127
